FAERS Safety Report 9788393 (Version 1)
Quarter: 2013Q4

REPORT INFORMATION
  Report Type: Report from Study
  Country: NL (occurrence: NL)
  Receive Date: 20131230
  Receipt Date: 20131230
  Transmission Date: 20140711
  Serious: Yes (Other)
  Sender: FDA-Public Use
  Company Number: NL-ABBVIE-13P-114-1181374-00

PATIENT
  Age: 31 Year
  Sex: Female
  Weight: 67 kg

DRUGS (4)
  1. LUCRIN DEPOT [Suspect]
     Indication: BREAST CANCER FEMALE
     Route: 058
     Dates: start: 20121219
  2. TAMOXIFEN [Concomitant]
     Indication: BREAST CANCER FEMALE
     Route: 048
     Dates: start: 20121219
  3. BONEFOS [Concomitant]
     Indication: BREAST CANCER FEMALE
     Route: 048
     Dates: start: 20121219
  4. CUTIVATE [Concomitant]
     Indication: ECZEMA
     Dosage: ROUTE OF ADMINISTATIONS: CUTANEOUS

REACTIONS (3)
  - Breast cancer metastatic [Unknown]
  - Hot flush [Not Recovered/Not Resolved]
  - Skin reaction [Not Recovered/Not Resolved]
